FAERS Safety Report 6939279-0 (Version None)
Quarter: 2010Q3

REPORT INFORMATION
  Report Type: 
  Country: None (occurrence: None)
  Receive Date: 20100824
  Receipt Date: 20100810
  Transmission Date: 20110219
  Serious: Yes (Hospitalization)
  Sender: FDA-Public Use
  Company Number: JP-JNJFOC-20100804901

PATIENT
  Age: 31 Year
  Sex: Female

DRUGS (1)
  1. INFLIXIMAB, RECOMBINANT [Suspect]
     Indication: CROHN'S DISEASE
     Dosage: TREATMENT DURATION 1 YEAR
     Route: 042

REACTIONS (3)
  - ACUTE DISSEMINATED ENCEPHALOMYELITIS [None]
  - EPSTEIN-BARR VIRUS INFECTION [None]
  - MENINGITIS ASEPTIC [None]
